FAERS Safety Report 8470554-7 (Version None)
Quarter: 2012Q2

REPORT INFORMATION
  Report Type: 
  Country: None (occurrence: None)
  Receive Date: 20120627
  Receipt Date: 20120618
  Transmission Date: 20120825
  Serious: Yes (Hospitalization, Other)
  Sender: FDA-Public Use
  Company Number: PHHY2011BR40336

PATIENT
  Sex: Male

DRUGS (5)
  1. TEGRETOL [Suspect]
     Indication: CONVULSION
     Dosage: 2 DF, DAILY
  2. SANDOSTATIN LAR [Suspect]
     Indication: ACROMEGALY
     Dosage: 30 MG, EVERY 30 DAYS
     Route: 030
     Dates: start: 20000601
  3. TESTOSTERONE CYPIONATE [Concomitant]
     Indication: HORMONE REPLACEMENT THERAPY
  4. TEGRETOL [Suspect]
     Dosage: 3 DF, DAILY
  5. TEGRETOL [Suspect]
     Dosage: 4 DF, DAILY

REACTIONS (11)
  - SLEEP APNOEA SYNDROME [None]
  - HYPERHIDROSIS [None]
  - WEIGHT DECREASED [None]
  - HYPERGLYCAEMIA [None]
  - CONVULSION [None]
  - ARTHRALGIA [None]
  - SOMNOLENCE [None]
  - DIZZINESS [None]
  - HYPERTENSION [None]
  - HORMONE LEVEL ABNORMAL [None]
  - PAIN IN EXTREMITY [None]
